FAERS Safety Report 10008951 (Version 1)
Quarter: 2014Q1

REPORT INFORMATION
  Report Type: Spontaneous
  Country: US (occurrence: US)
  Receive Date: 20140313
  Receipt Date: 20140313
  Transmission Date: 20141002
  Serious: No
  Sender: FDA-Public Use
  Company Number: US-INCYTE CORPORATION-2012IN001015

PATIENT
  Age: 60 Year
  Sex: Female

DRUGS (7)
  1. JAKAFI [Suspect]
     Indication: MYELOFIBROSIS
     Dosage: 15 MG, BID
     Route: 048
     Dates: start: 20120601
  2. ASPIRIN [Concomitant]
     Dosage: 81 MG, QD
  3. PREMARIN [Concomitant]
     Dosage: 0.625 MG, QD
  4. PROTONIX [Concomitant]
     Dosage: 40 MG, QD
  5. PRAVASTATIN [Concomitant]
     Dosage: 40 MG, QD
  6. ALPRAZOLAM [Concomitant]
     Dosage: 3.5 MG, QD
  7. NORCO [Concomitant]
     Dosage: 10/325 MG, BID

REACTIONS (1)
  - Spleen disorder [Unknown]
